FAERS Safety Report 18917198 (Version 1)
Quarter: 2021Q1

REPORT INFORMATION
  Report Type: Spontaneous
  Country: JP (occurrence: JP)
  Receive Date: 20210219
  Receipt Date: 20210219
  Transmission Date: 20210420
  Serious: Yes (Disabling)
  Sender: FDA-Public Use
  Company Number: JP-009507513-2102JPN001668J

PATIENT
  Age: 67 Year
  Sex: Male

DRUGS (1)
  1. MENESIT TABLETS ? 100 [Suspect]
     Active Substance: CARBIDOPA\LEVODOPA
     Dosage: UNK
     Route: 048
     Dates: start: 201606, end: 201609

REACTIONS (3)
  - Confusional state [Unknown]
  - Injury [Unknown]
  - Motor dysfunction [Unknown]
